FAERS Safety Report 7302689-6 (Version None)
Quarter: 2011Q1

REPORT INFORMATION
  Report Type: 
  Country: None (occurrence: None)
  Receive Date: 20110218
  Receipt Date: 20110213
  Transmission Date: 20110831
  Serious: Yes (Hospitalization)
  Sender: FDA-Public Use
  Company Number: US-US-EMD SERONO, INC.-7029565

PATIENT
  Sex: Male
  Weight: 111 kg

DRUGS (20)
  1. UNSPECIFIED MEDICATION [Concomitant]
  2. UNSPECIFIED MEDICATION [Concomitant]
     Indication: BACK PAIN
  3. LASIX [Concomitant]
  4. DEPAKOTE [Concomitant]
  5. REBIF [Suspect]
     Route: 058
     Dates: start: 20100101
  6. METFORMIN [Concomitant]
     Indication: DIABETES MELLITUS
     Dates: start: 20100601
  7. UNSPECIFIED MEDICATION [Concomitant]
     Indication: GAIT DISTURBANCE
  8. POTASSIUM [Concomitant]
  9. PROCARDIA [Concomitant]
  10. COREG [Concomitant]
  11. UNSPECIFIED MEDICATION [Concomitant]
     Indication: HYPERTENSION
  12. CATAPRES [Concomitant]
  13. ROBAXIN [Concomitant]
  14. REBIF [Suspect]
     Indication: MULTIPLE SCLEROSIS
     Route: 058
     Dates: start: 20101122, end: 20100101
  15. INSULIN [Concomitant]
     Indication: TYPE 1 DIABETES MELLITUS
     Dates: start: 20100601
  16. GLYPIZIDE [Concomitant]
     Indication: DIABETES MELLITUS
     Dates: start: 20100601
  17. UNSPECIFIED MEDICATION [Concomitant]
     Indication: CARDIAC FAILURE CONGESTIVE
  18. FLU SHOT [Concomitant]
     Dates: start: 20101203, end: 20101203
  19. NEURONTIN [Concomitant]
  20. LOPID [Concomitant]

REACTIONS (13)
  - PNEUMONIA [None]
  - INFLUENZA LIKE ILLNESS [None]
  - VACCINATION COMPLICATION [None]
  - HEADACHE [None]
  - FATIGUE [None]
  - PAIN [None]
  - OEDEMA PERIPHERAL [None]
  - BACK PAIN [None]
  - BLOOD GLUCOSE INCREASED [None]
  - INFLUENZA [None]
  - GAIT DISTURBANCE [None]
  - RENAL IMPAIRMENT [None]
  - MULTIPLE SCLEROSIS RELAPSE [None]
